FAERS Safety Report 11570299 (Version 3)
Quarter: 2015Q4

REPORT INFORMATION
  Report Type: Spontaneous
  Country: US (occurrence: US)
  Receive Date: 20150916
  Receipt Date: 20151110
  Transmission Date: 20160304
  Serious: No
  Sender: FDA-Public Use
  Company Number: US-ELI_LILLY_AND_COMPANY-US200909000677

PATIENT
  Age: 89 Year
  Sex: Female

DRUGS (4)
  1. FORTEO [Suspect]
     Active Substance: TERIPARATIDE
     Dosage: 20 UG, QD
     Dates: start: 201202
  2. FORTEO [Suspect]
     Active Substance: TERIPARATIDE
     Dosage: 20 UG, QD
  3. FORTEO [Suspect]
     Active Substance: TERIPARATIDE
     Indication: OSTEOPOROSIS
     Dosage: 20 UG, QD
     Dates: end: 20090901
  4. FORTEO [Suspect]
     Active Substance: TERIPARATIDE
     Dosage: 20 UG, QD
     Dates: start: 20091022, end: 201112

REACTIONS (13)
  - Abdominal discomfort [Unknown]
  - Asthenia [Unknown]
  - Bed rest [Unknown]
  - Nervousness [Unknown]
  - Pain [Unknown]
  - Intentional product misuse [Recovered/Resolved]
  - Abdominal pain upper [Unknown]
  - Anxiety [Unknown]
  - Dysstasia [Unknown]
  - Dizziness [Unknown]
  - Pain [Not Recovered/Not Resolved]
  - Nausea [Unknown]
  - Malaise [Unknown]

NARRATIVE: CASE EVENT DATE: 201112
